FAERS Safety Report 20410878 (Version 1)
Quarter: 2022Q1

REPORT INFORMATION
  Report Type: Spontaneous
  Country: US (occurrence: US)
  Receive Date: 20220201
  Receipt Date: 20220201
  Transmission Date: 20220424
  Serious: Yes (Hospitalization, Other)
  Sender: FDA-Public Use
  Company Number: US-PURDUE PHARMA-USA-2022-0290986

PATIENT
  Age: 30 Year
  Sex: Female
  Weight: 58 kg

DRUGS (6)
  1. MS CONTIN [Suspect]
     Active Substance: MORPHINE SULFATE
     Indication: Pain
     Dosage: 100 MG PER DAY FOR MORE THAN 12 MONTHS
     Route: 065
     Dates: start: 200011
  2. VICODIN [Suspect]
     Active Substance: ACETAMINOPHEN\HYDROCODONE BITARTRATE
     Indication: Pain
     Dosage: 500 MG, MORE THAN 5 YEARS, 325/5
     Route: 048
     Dates: start: 1995
  3. VICODIN [Suspect]
     Active Substance: ACETAMINOPHEN\HYDROCODONE BITARTRATE
     Indication: Suicide attempt
     Dosage: TOOK BIG BOTTLE
     Route: 048
     Dates: start: 20030124, end: 20030126
  4. PREDNISONE [Concomitant]
     Active Substance: PREDNISONE
     Indication: Product used for unknown indication
     Dosage: 20 MG PER DAY FOR MORE THAN 12 MONTHS
     Route: 065
  5. ALLEGRA [Concomitant]
     Active Substance: FEXOFENADINE HYDROCHLORIDE
     Indication: Product used for unknown indication
     Dosage: 120 MG PER DAY FOR MORE THAN 12 MONTHS
     Route: 065
  6. ELAVIL                             /00002202/ [Concomitant]
     Indication: Product used for unknown indication
     Dosage: 50 MG PER DAY FOR MORE THAN 12 MONTHS
     Route: 065

REACTIONS (8)
  - Suicide attempt [Recovered/Resolved]
  - Drug dependence [Recovered/Resolved]
  - Acute hepatic failure [Recovered/Resolved]
  - Acute kidney injury [Recovered/Resolved]
  - Nausea [Unknown]
  - Vomiting [Unknown]
  - Abdominal pain [Unknown]
  - Malaise [Unknown]

NARRATIVE: CASE EVENT DATE: 20030123
